FAERS Safety Report 7910304-3 (Version None)
Quarter: 2011Q4

REPORT INFORMATION
  Report Type: 
  Country: None (occurrence: None)
  Receive Date: 20111111
  Receipt Date: 20111107
  Transmission Date: 20120403
  Serious: Yes (Other)
  Sender: FDA-Public Use
  Company Number: SK-ROCHE-1010921

PATIENT
  Sex: Female

DRUGS (2)
  1. BONIVA [Suspect]
     Indication: OSTEOPOROSIS
     Route: 048
     Dates: start: 20100701, end: 20110831
  2. CALTRATE PLUS [Concomitant]
     Indication: OSTEOPOROSIS
     Route: 048
     Dates: start: 20091101

REACTIONS (2)
  - TOOTH DISORDER [None]
  - TOOTH FRACTURE [None]
